FAERS Safety Report 7933290-9 (Version None)
Quarter: 2011Q4

REPORT INFORMATION
  Report Type: 
  Country: None (occurrence: None)
  Receive Date: 20111122
  Receipt Date: 20111107
  Transmission Date: 20120403
  Serious: Yes (Hospitalization)
  Sender: FDA-Public Use
  Company Number: PHHY2011PL098244

PATIENT
  Sex: Male
  Weight: 66 kg

DRUGS (2)
  1. METHOTREXATE [Suspect]
     Indication: RHEUMATOID ARTHRITIS
     Dosage: 25 MG, QW
     Route: 048
     Dates: start: 20070301
  2. INFLIXIMAB [Suspect]
     Dosage: 3 MG/KG/8 WEEKS
     Route: 042
     Dates: start: 20090820, end: 20110608

REACTIONS (2)
  - ABDOMINAL PAIN LOWER [None]
  - DIVERTICULITIS [None]
